FAERS Safety Report 21363962 (Version 1)
Quarter: 2022Q3

REPORT INFORMATION
  Report Type: Spontaneous
  Country: US (occurrence: None)
  Receive Date: 20220921
  Receipt Date: 20220921
  Transmission Date: 20221027
  Serious: Yes (Hospitalization, Other)
  Sender: FDA-Public Use
  Company Number: None

PATIENT
  Age: 29 Year
  Sex: Female
  Weight: 85.5 kg

DRUGS (1)
  1. METOCLOPRAMIDE HYDROCHLORIDE [Suspect]
     Active Substance: METOCLOPRAMIDE HYDROCHLORIDE
     Indication: Nausea
     Dosage: FREQUENCY : EVERY 4 HOURS;?
     Route: 048
     Dates: start: 20220916, end: 20220919

REACTIONS (3)
  - Eye movement disorder [None]
  - Tremor [None]
  - Muscle disorder [None]

NARRATIVE: CASE EVENT DATE: 20220919
